FAERS Safety Report 6090651-3 (Version None)
Quarter: 2009Q1

REPORT INFORMATION
  Report Type: 
  Country: None (occurrence: None)
  Receive Date: 20090223
  Receipt Date: 20090210
  Transmission Date: 20090719
  Serious: Yes (Death)
  Sender: FDA-Public Use
  Company Number: 2009-0001

PATIENT
  Age: 15 Year
  Sex: Male

DRUGS (1)
  1. PROZAC [Suspect]

REACTIONS (1)
  - HOMICIDE [None]
